APPROVED DRUG PRODUCT: COTRIM D.S.
Active Ingredient: SULFAMETHOXAZOLE; TRIMETHOPRIM
Strength: 800MG;160MG
Dosage Form/Route: TABLET;ORAL
Application: A070048 | Product #001
Applicant: TEVA PHARMACEUTICALS USA INC
Approved: Mar 18, 1985 | RLD: No | RS: No | Type: DISCN